FAERS Safety Report 9739061 (Version 1)
Quarter: 2013Q4

REPORT INFORMATION
  Report Type: Report from Study
  Country: US (occurrence: US)
  Receive Date: 20131209
  Receipt Date: 20131209
  Transmission Date: 20140711
  Serious: Yes (Death)
  Sender: FDA-Public Use
  Company Number: US-ROCHE-1316471

PATIENT
  Age: 62 Year
  Sex: Female
  Weight: 76.27 kg

DRUGS (40)
  1. AVASTIN [Suspect]
     Indication: NON-SMALL CELL LUNG CANCER
     Route: 042
     Dates: start: 20111114
  2. AVASTIN [Suspect]
     Route: 042
     Dates: start: 20111205
  3. AVASTIN [Suspect]
     Route: 042
     Dates: start: 20111224, end: 20111227
  4. AVASTIN [Suspect]
     Route: 042
     Dates: start: 20111227, end: 20120116
  5. AVASTIN [Suspect]
     Route: 042
     Dates: start: 20120114
  6. AVASTIN [Suspect]
     Route: 042
     Dates: start: 20120116
  7. AVASTIN [Suspect]
     Route: 042
     Dates: start: 20120204
  8. AVASTIN [Suspect]
     Route: 042
     Dates: start: 20120305
  9. AVASTIN [Suspect]
     Route: 042
     Dates: start: 20120326
  10. AVASTIN [Suspect]
     Route: 042
     Dates: start: 20120416
  11. AVASTIN [Suspect]
     Route: 042
     Dates: start: 20120419
  12. AVASTIN [Suspect]
     Route: 042
     Dates: start: 20120507
  13. AVASTIN [Suspect]
     Route: 042
     Dates: start: 20120529
  14. AVASTIN [Suspect]
     Route: 042
     Dates: start: 20120710
  15. CARBOPLATIN [Concomitant]
  16. PRALATREXATE [Concomitant]
  17. ALOXI [Concomitant]
     Route: 042
     Dates: start: 20120419
  18. ALOXI [Concomitant]
     Route: 050
     Dates: start: 20120416
  19. DECADRON [Concomitant]
     Route: 042
  20. LORAZEPAM [Concomitant]
     Route: 042
     Dates: start: 20120419
  21. LORAZEPAM [Concomitant]
     Route: 042
     Dates: start: 20120315
  22. PEMETREXED [Concomitant]
     Route: 042
  23. PEMETREXED [Concomitant]
     Route: 042
     Dates: start: 20111205, end: 20111227
  24. PEMETREXED [Concomitant]
     Route: 042
     Dates: start: 20111227, end: 20120106
  25. PEMETREXED [Concomitant]
     Route: 042
     Dates: start: 20120106, end: 20120710
  26. PEMETREXED [Concomitant]
     Route: 042
     Dates: start: 20120710
  27. PEMETREXED [Concomitant]
     Route: 042
     Dates: start: 20120419
  28. FAMOTIDINE [Concomitant]
     Route: 042
  29. CARBOPLATIN [Concomitant]
     Route: 042
  30. CARBOPLATIN [Concomitant]
     Route: 042
     Dates: start: 20111227, end: 20120116
  31. CARBOPLATIN [Concomitant]
     Route: 042
     Dates: start: 20120116, end: 20120206
  32. CARBOPLATIN [Concomitant]
     Route: 042
     Dates: start: 20120206
  33. NEULASTA [Concomitant]
     Route: 065
  34. VITAMIN B12 [Concomitant]
     Route: 030
  35. FOLIC ACID [Concomitant]
  36. POTASSIUM CHLORIDE [Concomitant]
     Route: 048
  37. ATIVAN [Concomitant]
  38. PREDNISONE [Concomitant]
  39. MUCINEX [Concomitant]
  40. DEXAMETHASONE [Concomitant]
     Route: 050
     Dates: start: 20120419

REACTIONS (14)
  - Non-small cell lung cancer [Fatal]
  - Pleural effusion [Fatal]
  - Death [Fatal]
  - Nasopharyngitis [Unknown]
  - Bronchitis [Unknown]
  - Fatigue [Unknown]
  - Nasal congestion [Unknown]
  - Dyspnoea [Unknown]
  - Decreased appetite [Unknown]
  - Hypogeusia [Unknown]
  - Cough [Unknown]
  - Poor quality sleep [Unknown]
  - Sputum discoloured [Unknown]
  - Weight decreased [Unknown]
